FAERS Safety Report 15697342 (Version 1)
Quarter: 2018Q4

REPORT INFORMATION
  Report Type: Spontaneous
  Country: FR (occurrence: FR)
  Receive Date: 20181206
  Receipt Date: 20181206
  Transmission Date: 20190205
  Serious: Yes (Other)
  Sender: FDA-Public Use
  Company Number: FR-BAXTER-2018BAX029294

PATIENT
  Age: 3 Day
  Sex: Male

DRUGS (2)
  1. CALCIUM GLUCONATE. [Suspect]
     Active Substance: CALCIUM GLUCONATE
     Indication: NEONATAL HYPOCALCAEMIA
     Route: 042
     Dates: start: 20181029, end: 20181101
  2. GLUCOSE 10% BAXTER, SOLUTION POUR PERFUSION [Suspect]
     Active Substance: DEXTROSE
     Indication: HYPOGLYCAEMIA NEONATAL
     Route: 042
     Dates: start: 20181029, end: 20181101

REACTIONS (1)
  - Infusion site necrosis [Recovering/Resolving]

NARRATIVE: CASE EVENT DATE: 20181101
